FAERS Safety Report 10869960 (Version 1)
Quarter: 2015Q1

REPORT INFORMATION
  Report Type: Spontaneous
  Country: US (occurrence: US)
  Receive Date: 20150226
  Receipt Date: 20150226
  Transmission Date: 20150721
  Serious: No
  Sender: FDA-Public Use
  Company Number: US-PFIZER INC-2015071307

PATIENT
  Age: 71 Year
  Sex: Female

DRUGS (7)
  1. CODEINE PHOSPHATE [Suspect]
     Active Substance: CODEINE PHOSPHATE
     Dosage: SOLUTION
  2. ERYTHROMYCIN. [Suspect]
     Active Substance: ERYTHROMYCIN
     Dosage: UNK
  3. TETRACYCLINE [Suspect]
     Active Substance: TETRACYCLINE
     Dosage: POWDER
  4. KEFLEX [Suspect]
     Active Substance: CEPHALEXIN
     Dosage: UNK
  5. FENTANYL. [Suspect]
     Active Substance: FENTANYL
     Dosage: ^PT72^
  6. TIMOLOL MALEATE. [Suspect]
     Active Substance: TIMOLOL MALEATE
     Dosage: SOLUTION
  7. SKELAXIN [Suspect]
     Active Substance: METAXALONE
     Dosage: UNK

REACTIONS (1)
  - Drug hypersensitivity [Unknown]
